FAERS Safety Report 19374525 (Version 1)
Quarter: 2021Q2

REPORT INFORMATION
  Report Type: Spontaneous
  Country: JP (occurrence: JP)
  Receive Date: 20210604
  Receipt Date: 20210604
  Transmission Date: 20210717
  Serious: Yes (Other)
  Sender: FDA-Public Use
  Company Number: JP-GLAXOSMITHKLINE-JP2021JPN117382

PATIENT
  Sex: Female

DRUGS (13)
  1. RELVAR ELLIPTA [Suspect]
     Active Substance: FLUTICASONE FUROATE\VILANTEROL TRIFENATATE
     Indication: ASTHMA
     Dosage: UNK
     Dates: end: 2017
  2. LIXIANA OD [Concomitant]
     Active Substance: EDOXABAN TOSYLATE
     Dosage: 30 MG, QD, IN THE MORNING
  3. METHYCOBAL [Concomitant]
     Active Substance: METHYLCOBALAMIN
     Dosage: 500 ?G, TID
  4. GRANDAXIN [Concomitant]
     Active Substance: TOFISOPAM
     Dosage: 50 MG, TID
  5. MAINTATE [Concomitant]
     Active Substance: BISOPROLOL FUMARATE
     Dosage: 2.5 MG, QD, AFTER BREAKFAST
  6. NEXIUM [Concomitant]
     Active Substance: ESOMEPRAZOLE MAGNESIUM
     Dosage: UNK
  7. AMITIZA [Concomitant]
     Active Substance: LUBIPROSTONE
     Dosage: 24 ?G, BID, AFTER BREAKFAST AND BEFORE BEDTIME
  8. MAGMITT TABLET [Concomitant]
     Dosage: 500 MG, BID, IN THE MORNING AND IN THE EVENING
  9. LANDEL [Concomitant]
     Active Substance: UNSPECIFIED INGREDIENT
     Dosage: 10 MG, BID, IN THE MORNING AND IN THE EVENING
  10. CELECOX [Concomitant]
     Active Substance: CELECOXIB
     Dosage: AS NEEDED BASIS AT THE ONSET OF PAIN
  11. MERISLON [Concomitant]
     Active Substance: BETAHISTINE MESILATE
     Dosage: 6 MG, TID
  12. CARNACULIN [Concomitant]
     Active Substance: KALLIDINOGENASE
     Dosage: 50 MG, TID
  13. OLMESARTAN MEDOXOMIL TABLETS [Concomitant]
     Active Substance: OLMESARTAN MEDOXOMIL
     Dosage: 20 MG, QD, IN THE MORNING

REACTIONS (1)
  - Oesophageal candidiasis [Unknown]

NARRATIVE: CASE EVENT DATE: 201703
